FAERS Safety Report 6942075-1 (Version None)
Quarter: 2010Q3

REPORT INFORMATION
  Report Type: 
  Country: None (occurrence: None)
  Receive Date: 20100823
  Receipt Date: 20100809
  Transmission Date: 20110219
  Serious: Yes (Other)
  Sender: FDA-Public Use
  Company Number: DSJ-2010-13408

PATIENT
  Age: 51 Year
  Sex: Female
  Weight: 43 kg

DRUGS (2)
  1. OLMESARTAN MEDOXOMIL [Suspect]
     Indication: ESSENTIAL HYPERTENSION
     Dosage: 10 MG, PER ORAL; 5 MG, PER ORAL
     Route: 048
     Dates: start: 20100313, end: 20100325
  2. OLMESARTAN MEDOXOMIL [Suspect]
     Indication: ESSENTIAL HYPERTENSION
     Dosage: 10 MG, PER ORAL; 5 MG, PER ORAL
     Route: 048
     Dates: start: 20100326

REACTIONS (3)
  - HYPOTENSION [None]
  - NAUSEA [None]
  - TENSION HEADACHE [None]
